FAERS Safety Report 10267012 (Version 1)
Quarter: 2014Q2

REPORT INFORMATION
  Report Type: Spontaneous
  Country: US (occurrence: US)
  Receive Date: 20140630
  Receipt Date: 20140630
  Transmission Date: 20141212
  Serious: Yes (Death)
  Sender: FDA-Public Use
  Company Number: US-BRISTOL-MYERS SQUIBB COMPANY-21075957

PATIENT
  Age: 71 Year
  Sex: Male
  Weight: 92.06 kg

DRUGS (1)
  1. KOMBIGLYZE XR [Suspect]
     Indication: TYPE 2 DIABETES MELLITUS
     Dosage: 1 DF= 5MG/1000MG
     Dates: start: 20131127

REACTIONS (1)
  - Sudden cardiac death [Fatal]
